FAERS Safety Report 6666051-1 (Version None)
Quarter: 2010Q2

REPORT INFORMATION
  Report Type: 
  Country: None (occurrence: None)
  Receive Date: 20100402
  Receipt Date: 20100401
  Transmission Date: 20101027
  Serious: Yes (Death, Life-Threatening)
  Sender: FDA-Public Use
  Company Number: B0638080A

PATIENT
  Sex: Female
  Weight: 90 kg

DRUGS (14)
  1. ARIXTRA [Suspect]
     Indication: PHLEBITIS
     Dosage: 7.5MG SINGLE DOSE
     Route: 058
     Dates: start: 20100303, end: 20100303
  2. AUGMENTIN '125' [Concomitant]
     Route: 065
     Dates: start: 20100304
  3. GENTAMICIN [Concomitant]
     Route: 065
     Dates: start: 20100304
  4. FLAGYL [Concomitant]
     Route: 065
     Dates: start: 20100304
  5. DAFALGAN [Concomitant]
     Route: 048
     Dates: start: 20100303
  6. SURGERY [Concomitant]
     Dates: start: 20100304
  7. IRBESARTAN [Concomitant]
     Route: 048
  8. LASIX [Concomitant]
     Route: 048
  9. DIFFU K [Concomitant]
     Route: 048
  10. OMEPRAZOLE [Concomitant]
     Route: 048
  11. ALPRAZOLAM [Concomitant]
     Route: 048
  12. MIANSERINE [Concomitant]
     Route: 048
  13. ACETAMINOPHEN W/ PROPOXYPHENE HCL [Concomitant]
     Route: 048
  14. INSULIN [Concomitant]
     Route: 051

REACTIONS (5)
  - ANAEMIA [None]
  - INCISION SITE HAEMORRHAGE [None]
  - LUNG DISORDER [None]
  - POST PROCEDURAL HAEMORRHAGE [None]
  - VENTRICULAR TACHYCARDIA [None]
